FAERS Safety Report 11135342 (Version 1)
Quarter: 2015Q2

REPORT INFORMATION
  Report Type: Report from Study
  Country: CO (occurrence: CO)
  Receive Date: 20150525
  Receipt Date: 20150525
  Transmission Date: 20150821
  Serious: Yes (Hospitalization, Other)
  Sender: FDA-Public Use
  Company Number: PHHY2015CO062202

PATIENT
  Age: 63 Year
  Sex: Female
  Weight: 43 kg

DRUGS (4)
  1. LOSARTAN [Concomitant]
     Active Substance: LOSARTAN
     Indication: HYPERTENSION
     Dosage: 50 MG, BID
     Route: 065
  2. AFINITOR [Suspect]
     Active Substance: EVEROLIMUS
     Indication: BREAST CANCER METASTATIC
     Dosage: 10 MG (1 TABLET), QD
     Route: 048
  3. LETROZOLE. [Concomitant]
     Active Substance: LETROZOLE
     Indication: NEOPLASM MALIGNANT
     Dosage: 2.5 MG, QD
     Route: 065
  4. AFINITOR [Suspect]
     Active Substance: EVEROLIMUS
     Dosage: 5 MG, Q12H
     Route: 048

REACTIONS (5)
  - Pleural effusion [Unknown]
  - Pain of skin [Unknown]
  - Musculoskeletal chest pain [Unknown]
  - Back pain [Unknown]
  - Hepatic neoplasm [Unknown]

NARRATIVE: CASE EVENT DATE: 201504
